FAERS Safety Report 5692510-4 (Version None)
Quarter: 2008Q2

REPORT INFORMATION
  Report Type: 
  Country: None (occurrence: None)
  Receive Date: 20080328
  Receipt Date: 20070710
  Transmission Date: 20081010
  Serious: Yes (Other)
  Sender: FDA-Public Use
  Company Number: 38905

PATIENT
  Age: 70 Year
  Sex: Female

DRUGS (11)
  1. ADRIAMYCIN PFS [Suspect]
     Indication: BREAST CANCER
     Dosage: 110 MG/IV
     Route: 042
     Dates: start: 20070710
  2. ASPIRIN [Concomitant]
  3. SYNTHROID [Concomitant]
  4. PRAVACHOL [Concomitant]
  5. K-DUR [Concomitant]
  6. FUROSEMIDE [Concomitant]
  7. DILTIAZEM HCL [Concomitant]
  8. ATENOLOL [Concomitant]
  9. XANAX [Concomitant]
  10. PRILOSEC [Concomitant]
  11. ISOSORBIDE MONONITRATE [Concomitant]

REACTIONS (2)
  - CHEST DISCOMFORT [None]
  - HYPERSENSITIVITY [None]
